FAERS Safety Report 14691663 (Version 1)
Quarter: 2018Q1

REPORT INFORMATION
  Report Type: Spontaneous
  Country: PT (occurrence: PT)
  Receive Date: 20180329
  Receipt Date: 20180329
  Transmission Date: 20180509
  Serious: Yes (Other)
  Sender: FDA-Public Use
  Company Number: PT-TEVA-2018-PT-876357

PATIENT
  Age: 45 Year
  Sex: Male

DRUGS (3)
  1. PARACETAMOL [Suspect]
     Active Substance: ACETAMINOPHEN
     Route: 065
     Dates: start: 2014
  2. AMLODIPINA + TELMISARTAN [Concomitant]
     Active Substance: AMLODIPINE\TELMISARTAN
     Indication: HYPERTENSION
     Route: 048
  3. IBUPROFEN. [Suspect]
     Active Substance: IBUPROFEN
     Route: 048
     Dates: start: 2014

REACTIONS (2)
  - Dyspnoea [Recovered/Resolved]
  - Angioedema [Recovered/Resolved]

NARRATIVE: CASE EVENT DATE: 2014
